FAERS Safety Report 10149215 (Version 1)
Quarter: 2014Q2

REPORT INFORMATION
  Report Type: Spontaneous
  Country: US (occurrence: None)
  Receive Date: 20140501
  Receipt Date: 20140501
  Transmission Date: 20141212
  Serious: No
  Sender: FDA-Public Use
  Company Number: None

PATIENT
  Age: 39 Year
  Sex: Female

DRUGS (1)
  1. EXJADE 250 MG NOVARTIS [Suspect]
     Indication: IRON OVERLOAD
     Dosage: HAIR LOSS STARTED AFTER TAKING EXJADE
     Route: 048

REACTIONS (1)
  - Alopecia [None]
